FAERS Safety Report 23437024 (Version 2)
Quarter: 2025Q1

REPORT INFORMATION
  Report Type: Spontaneous
  Country: AU (occurrence: AU)
  Receive Date: 20240124
  Receipt Date: 20250320
  Transmission Date: 20250409
  Serious: Yes (Hospitalization, Other)
  Sender: CIPLA
  Company Number: AU-CIPLA LTD.-2024AU00376

PATIENT

DRUGS (22)
  1. ACETAMINOPHEN [Suspect]
     Active Substance: ACETAMINOPHEN
     Indication: Umbilical hernia
     Dosage: 500 MILLIGRAM, QID (2 DOSAGE FORM(S) FOUR TIMES A DAY (8 DOSAGE FORM(S) DAILY))
     Route: 065
  2. ACETAMINOPHEN [Suspect]
     Active Substance: ACETAMINOPHEN
     Indication: Pain
  3. PREGABALIN [Suspect]
     Active Substance: PREGABALIN
     Indication: Prophylaxis
     Dosage: 150 MILLIGRAM, BID (1 DOSAGE FORM(S) TWICE A DAY (2  DOSAGE FORM(S) DAILY))
     Route: 065
  4. FENOFIBRATE [Suspect]
     Active Substance: FENOFIBRATE
     Indication: Prophylaxis
     Dosage: 145 MILLIGRAM, QD (1 DOSAGE FORM(S) DAILY)
     Route: 065
  5. FENOFIBRATE [Suspect]
     Active Substance: FENOFIBRATE
     Indication: Hypercholesterolaemia
  6. CICLESONIDE [Suspect]
     Active Substance: CICLESONIDE
     Indication: Asthma
     Dosage: 160 MICROGRAM, BID (1 PUFF(S) TWICE A DAY (2 PUFF(S) DAILY))
     Route: 065
  7. VENTOLIN [Suspect]
     Active Substance: ALBUTEROL SULFATE
     Indication: Asthma
     Route: 065
  8. OXYCODONE [Suspect]
     Active Substance: OXYCODONE
     Indication: Product used for unknown indication
     Route: 065
  9. NICOTINE [Suspect]
     Active Substance: NICOTINE
     Indication: Smoking cessation therapy
     Dosage: 24 MILLIGRAM, QD 1 DOSAGE FORM(S) DAILY
     Route: 065
  10. PREDNISOLONE [Suspect]
     Active Substance: PREDNISOLONE
     Indication: Asthma
     Dosage: 25 MILLIGRAM, QD 1 DOSAGE FORM(S) DAILY
     Route: 065
  11. CLOZAPINE [Suspect]
     Active Substance: CLOZAPINE
     Indication: Schizophrenia
     Dosage: 100 MILLIGRAM, BID (2 DOSAGE FORM(S) TWICE A DAY (4 DOSAGE FORM(S) DAILY))
     Route: 065
  12. ATORVASTATIN [Suspect]
     Active Substance: ATORVASTATIN
     Indication: Hypercholesterolaemia
     Dosage: 10 MILLIGRAM, QD ( 1 DOSAGE FORM(S) DAILY)
     Route: 065
  13. CHOLESTYRAMINE [Suspect]
     Active Substance: CHOLESTYRAMINE
     Indication: Prophylaxis
     Dosage: 4 MILLIGRAM, BID (1 DOSAGE FORM(S) TWICE A DAY (2 DOSAGE FORM(S) DAILY))
     Route: 065
  14. DOCUSATE [Suspect]
     Active Substance: DOCUSATE
     Indication: Constipation
     Route: 065
  15. ESOMEPRAZOLE [Suspect]
     Active Substance: ESOMEPRAZOLE
     Indication: Dyspepsia
     Dosage: 25 MILLIGRAM, QD (1 DOSAGE FORM(S) DAILY)
     Route: 065
  16. LOPERAMIDE HYDROCHLORIDE [Suspect]
     Active Substance: LOPERAMIDE HYDROCHLORIDE
     Indication: Prophylaxis
     Dosage: 2 MILLIGRAM, TID (1 DOSAGE FORM(S) THREE TIMES A DAY (3 DOSAGE FORM(S) DAILY),)
     Route: 065
  17. CELECOXIB [Suspect]
     Active Substance: CELECOXIB
     Indication: Product used for unknown indication
     Route: 065
  18. SALMETEROL [Concomitant]
     Active Substance: SALMETEROL
     Indication: Product used for unknown indication
     Route: 065
     Dates: start: 2020, end: 2020
  19. FLUTICASONE PROPIONATE [Concomitant]
     Active Substance: FLUTICASONE PROPIONATE
     Indication: Product used for unknown indication
     Route: 065
  20. METFORMIN HYDROCHLORIDE [Concomitant]
     Active Substance: METFORMIN HYDROCHLORIDE
     Indication: Product used for unknown indication
     Route: 048
  21. VENTOLIN [Concomitant]
     Active Substance: ALBUTEROL SULFATE
     Indication: Asthma
     Route: 065
  22. OXYCODONE [Concomitant]
     Active Substance: OXYCODONE
     Indication: Product used for unknown indication
     Route: 065

REACTIONS (11)
  - Hypokalaemia [Unknown]
  - Wheezing [Unknown]
  - Oxygen saturation decreased [Unknown]
  - Cough [Unknown]
  - Oropharyngeal pain [Unknown]
  - Decreased appetite [Unknown]
  - Neutropenia [Unknown]
  - Dyspnoea [Unknown]
  - Constipation [Unknown]
  - Headache [Unknown]
  - Musculoskeletal chest pain [Unknown]
